FAERS Safety Report 19800051 (Version 6)
Quarter: 2022Q2

REPORT INFORMATION
  Report Type: Spontaneous
  Country: JP (occurrence: JP)
  Receive Date: 20210907
  Receipt Date: 20220614
  Transmission Date: 20220721
  Serious: Yes (Hospitalization, Other)
  Sender: FDA-Public Use
  Company Number: JP-OTSUKA-2021_030478

PATIENT
  Age: 33 Year
  Sex: Female

DRUGS (6)
  1. ABILIFY MAINTENA [Suspect]
     Active Substance: ARIPIPRAZOLE
     Indication: Schizophrenia
     Dosage: 400MG/SHOT
     Route: 030
     Dates: start: 20160212, end: 20210727
  2. ABILIFY MAINTENA [Suspect]
     Active Substance: ARIPIPRAZOLE
     Indication: Psychiatric symptom
  3. ABILIFY [Suspect]
     Active Substance: ARIPIPRAZOLE
     Indication: Schizophrenia
     Dosage: 6 MG/DAY
     Route: 048
     Dates: start: 20210824
  4. ABILIFY [Suspect]
     Active Substance: ARIPIPRAZOLE
     Indication: Psychiatric symptom
     Dosage: 9 MG, UNK
     Route: 065
  5. ABILIFY [Suspect]
     Active Substance: ARIPIPRAZOLE
     Dosage: 6 MG, UNK
     Route: 065
     Dates: start: 20220326
  6. ABILIFY [Suspect]
     Active Substance: ARIPIPRAZOLE
     Dosage: 3 MG/DAY
     Route: 048
     Dates: start: 20220420

REACTIONS (9)
  - Premature labour [Recovering/Resolving]
  - Stillbirth [Unknown]
  - Uterine polyp [Not Recovered/Not Resolved]
  - Stillbirth [Unknown]
  - Premature rupture of membranes [Recovered/Resolved with Sequelae]
  - Intrauterine infection [Recovered/Resolved with Sequelae]
  - Uterine haemorrhage [Not Recovered/Not Resolved]
  - Abortion threatened [Not Recovered/Not Resolved]
  - Maternal exposure during pregnancy [Unknown]

NARRATIVE: CASE EVENT DATE: 20210817
